FAERS Safety Report 5472271-4 (Version None)
Quarter: 2007Q3

REPORT INFORMATION
  Report Type: 
  Country: None (occurrence: None)
  Receive Date: 20070927
  Receipt Date: 20070914
  Transmission Date: 20080115
  Serious: Yes (Death, Life-Threatening, Other)
  Sender: FDA-Public Use
  Company Number: 2007US002026

PATIENT
  Age: 84 Year
  Sex: Male
  Weight: 98.9 kg

DRUGS (12)
  1. ADENOSCAN [Suspect]
     Indication: SCAN MYOCARDIAL PERFUSION
     Dosage: 55.5 MG, TOTAL DOSE, IV NOS
     Route: 042
     Dates: start: 20070731, end: 20070731
  2. CARDIOLITE [Suspect]
     Indication: SCAN MYOCARDIAL PERFUSION
     Dosage: 24 MG, TOTAL DOSE, PARENTERAL
     Route: 051
     Dates: start: 20070731, end: 20070731
  3. ARICEPT [Concomitant]
  4. ACTOS [Concomitant]
  5. ATENOLOL [Concomitant]
  6. GLIPIZIDE [Concomitant]
  7. LOVASTATIN [Concomitant]
  8. CLONIDINE [Concomitant]
  9. DULCOLAX [Concomitant]
  10. FISH OIL (FISH OIL) [Concomitant]
  11. ASPIRIN [Concomitant]
  12. DIOVAN [Concomitant]

REACTIONS (12)
  - ABDOMINAL PAIN [None]
  - BODY TEMPERATURE INCREASED [None]
  - CARBON DIOXIDE INCREASED [None]
  - CARDIAC ARREST [None]
  - CARDIAC FAILURE [None]
  - CARDIO-RESPIRATORY ARREST [None]
  - CONFUSIONAL STATE [None]
  - HYPOKALAEMIA [None]
  - HYPOTENSION [None]
  - METABOLIC ACIDOSIS [None]
  - RENAL FAILURE ACUTE [None]
  - UNRESPONSIVE TO STIMULI [None]
